FAERS Safety Report 10398573 (Version 1)
Quarter: 2014Q3

REPORT INFORMATION
  Report Type: Spontaneous
  Country: CL (occurrence: CL)
  Receive Date: 20140821
  Receipt Date: 20140821
  Transmission Date: 20150326
  Serious: Yes (Death, Other)
  Sender: FDA-Public Use
  Company Number: PHHY2014CL103205

PATIENT

DRUGS (1)
  1. SLOW K [Suspect]
     Active Substance: POTASSIUM CHLORIDE
     Dosage: UNK UKN, PRN

REACTIONS (2)
  - Cardiac arrest [Unknown]
  - Death [Fatal]
